FAERS Safety Report 7866680-3 (Version None)
Quarter: 2011Q4

REPORT INFORMATION
  Report Type: 
  Country: None (occurrence: None)
  Receive Date: 20111028
  Receipt Date: 20110727
  Transmission Date: 20120403
  Serious: No
  Sender: FDA-Public Use
  Company Number: US-GLAXOSMITHKLINE-A0938543A

PATIENT
  Age: 52 Year
  Sex: Male

DRUGS (3)
  1. ADVAIR DISKUS 100/50 [Suspect]
     Indication: ASTHMA
     Dosage: 1PUFF PER DAY
     Route: 055
     Dates: start: 20010101
  2. FLONASE [Concomitant]
  3. IPRATROPIUM BROMIDE [Concomitant]

REACTIONS (2)
  - TOOTH FRACTURE [None]
  - TOOTH DISORDER [None]
